FAERS Safety Report 16576558 (Version 1)
Quarter: 2019Q3

REPORT INFORMATION
  Report Type: Spontaneous
  Country: GB (occurrence: GB)
  Receive Date: 20190716
  Receipt Date: 20190716
  Transmission Date: 20191004
  Serious: Yes (Hospitalization)
  Sender: FDA-Public Use
  Company Number: GB-TEVA-2019-GB-1076987

PATIENT
  Age: 46 Year
  Sex: Female
  Weight: 83 kg

DRUGS (20)
  1. METFORMIN [Concomitant]
     Active Substance: METFORMIN HYDROCHLORIDE
     Dosage: 1 DOSAGE FORMS DAILY; MORNING.
     Dates: start: 20190522
  2. PARACETAMOL [Concomitant]
     Active Substance: ACETAMINOPHEN
     Dosage: TO BE TAKEN FOUR TIMES DAILY. 2 DOSAGE FORMS
     Dates: start: 20181129
  3. MIRTAZAPINE. [Concomitant]
     Active Substance: MIRTAZAPINE
     Dosage: 1 DOSAGE FORMS DAILY; NIGHT.
     Dates: start: 20181214
  4. TRAMADOL. [Concomitant]
     Active Substance: TRAMADOL
     Dosage: TAKE ONE TO TWO EVERY 4 TO 6 HOURS.
     Dates: start: 20181129
  5. CASSIA [Concomitant]
     Indication: CONSTIPATION
     Dosage: TAKE 1 OR 2 AT NIGHT.
     Dates: start: 20181129
  6. CIPROFLOXACIN. [Concomitant]
     Active Substance: CIPROFLOXACIN
     Dates: start: 20190517, end: 20190518
  7. ZOMORPH [Concomitant]
     Active Substance: MORPHINE SULFATE
     Dosage: 1 DOSAGE FORMS DAILY;
     Dates: start: 20181129
  8. COCODAMOL [Concomitant]
     Active Substance: ACETAMINOPHEN\CODEINE PHOSPHATE
     Dosage: ONE OR TWO TO BE TAKEN FOUR TIMES DAILY.
     Dates: start: 20160830
  9. LORATADINE. [Concomitant]
     Active Substance: LORATADINE
     Dosage: 1 DOSAGE FORMS DAILY;
     Dates: start: 20040507
  10. MORPHINE SULFATE. [Concomitant]
     Active Substance: MORPHINE SULFATE
     Dosage: EVERY 1-2 HOURS. 5 ML
     Dates: start: 20181130
  11. LAXIDO [Concomitant]
     Active Substance: POLYETHYLENE GLYCOL 3350\POTASSIUM CHLORIDE\SODIUM BICARBONATE\SODIUM CHLORIDE
     Dosage: USE AS DIRECTED.
     Dates: start: 20190404, end: 20190418
  12. NITROFURANTOIN. [Concomitant]
     Active Substance: NITROFURANTOIN
     Dosage: 2 DOSAGE FORMS DAILY;
     Dates: start: 20190327, end: 20190403
  13. LEVOTHYROXINE. [Concomitant]
     Active Substance: LEVOTHYROXINE
     Dosage: 1 DOSAGE FORMS DAILY; MORNING.
     Dates: start: 20000420
  14. EPIPEN [Concomitant]
     Active Substance: EPINEPHRINE
     Indication: ANAPHYLACTIC REACTION
     Dosage: 1 IMMEDIATELY, CAN REPEAT AFTER 5 MINUTES.
     Dates: start: 20131217
  15. CLOTRIMAZOLE. [Concomitant]
     Active Substance: CLOTRIMAZOLE
     Dosage: USE AS DIRECTED.
     Dates: start: 20190524, end: 20190531
  16. KLIOVANCE [Concomitant]
     Active Substance: ESTRADIOL\NORETHINDRONE ACETATE
     Dosage: 1 DOSAGE FORMS DAILY; MORNING.
     Dates: start: 20060309
  17. METRONIDAZOLE. [Suspect]
     Active Substance: METRONIDAZOLE
     Dosage: 400 MILLIGRAM
     Dates: start: 20190617
  18. OMEPRAZOLE. [Concomitant]
     Active Substance: OMEPRAZOLE
     Dosage: 2 DOSAGE FORMS DAILY;
     Dates: start: 20120123
  19. CREON [Concomitant]
     Active Substance: PANCRELIPASE AMYLASE\PANCRELIPASE LIPASE\PANCRELIPASE PROTEASE
     Dosage: WITH MEALS. 4 DOSAGE FORMS
     Dates: start: 20181130
  20. NYSTAN [Concomitant]
     Active Substance: NYSTATIN
     Dosage: 4 DOSAGE FORMS DAILY; APPLY.
     Dates: start: 20190524, end: 20190531

REACTIONS (1)
  - Rash macular [Recovering/Resolving]

NARRATIVE: CASE EVENT DATE: 20190608
